FAERS Safety Report 8765361 (Version 1)
Quarter: 2012Q4

REPORT INFORMATION
  Report Type: 
  Country: US (occurrence: US)
  Receive Date: 20120830
  Receipt Date: 20120830
  Transmission Date: 20130627
  Serious: Yes (Hospitalization, Other)
  Sender: FDA-Public Use
  Company Number: US-ELI_LILLY_AND_COMPANY-US200910007327

PATIENT
  Sex: Female

DRUGS (13)
  1. ZYPREXA [Suspect]
     Indication: BIPOLAR DISORDER
     Dosage: 15 mg, each evening
  2. ZYPREXA [Suspect]
     Dosage: 5 mg, each morning
  3. ZYPREXA [Suspect]
     Dosage: 5 mg, prn
  4. ZYPREXA ZYDIS [Suspect]
     Indication: BIPOLAR DISORDER
     Dosage: 5 mg, prn
  5. ZYPREXA ZYDIS [Suspect]
     Dosage: 5 mg, each morning
  6. ZYPREXA ZYDIS [Suspect]
     Dosage: 15 mg, each evening
  7. DEPAKOTE [Concomitant]
     Dosage: 1000 mg, each evening
  8. SEROQUEL [Concomitant]
     Dosage: 100 mg, each morning
  9. SEROQUEL [Concomitant]
     Dosage: 400 mg, each evening
  10. FLUPHENAZINE [Concomitant]
     Dosage: 5 mg, bid
  11. BENZTROPINE [Concomitant]
     Dosage: 1 mg, bid
  12. LORAZEPAM [Concomitant]
     Dosage: 1 mg, unknown
  13. ABILIFY [Concomitant]
     Dosage: 20 mg, unknown

REACTIONS (23)
  - Renal failure acute [Recovering/Resolving]
  - Hyperglycaemic hyperosmolar nonketotic syndrome [Recovered/Resolved]
  - Tremor [Recovering/Resolving]
  - Insulin-requiring type 2 diabetes mellitus [Unknown]
  - Diabetic ketoacidosis [Recovered/Resolved]
  - Diabetic coma [Recovered/Resolved]
  - Vision blurred [Recovered/Resolved]
  - Neuropathy peripheral [Unknown]
  - Microalbuminuria [Unknown]
  - Hypoglycaemia [Recovered/Resolved]
  - Dehydration [Unknown]
  - Abscess jaw [Unknown]
  - Conjunctivitis [Unknown]
  - Onychomycosis [Unknown]
  - Onychogryphosis [Unknown]
  - Hyperkeratosis [Unknown]
  - Vaginal infection [Unknown]
  - Urinary tract infection [Unknown]
  - Mydriasis [Unknown]
  - Diabetes mellitus [Recovering/Resolving]
  - Oedema peripheral [Unknown]
  - Weight increased [Recovered/Resolved]
  - Dyslipidaemia [Unknown]
